FAERS Safety Report 13113397 (Version 1)
Quarter: 2017Q1

REPORT INFORMATION
  Report Type: Spontaneous
  Country: US (occurrence: US)
  Receive Date: 20170113
  Receipt Date: 20170113
  Transmission Date: 20170428
  Serious: Yes (Hospitalization)
  Sender: FDA-Public Use
  Company Number: None

PATIENT
  Age: 4 Year
  Sex: Male
  Weight: 17.5 kg

DRUGS (9)
  1. THIOGUANINE (6-TG) [Suspect]
     Active Substance: THIOGUANINE ANHYDROUS
     Dates: end: 20150321
  2. METHOTREXATE. [Suspect]
     Active Substance: METHOTREXATE
     Dates: end: 20161110
  3. ONCASPAR [Suspect]
     Active Substance: PEGASPARGASE
     Dates: end: 20150201
  4. DOXORUBICIN HYDROCHLORIDE. [Suspect]
     Active Substance: DOXORUBICIN HYDROCHLORIDE
     Dates: end: 20150212
  5. VINCRISTINE SULFATE. [Suspect]
     Active Substance: VINCRISTINE SULFATE
     Dates: end: 20161110
  6. CYTARABINE. [Suspect]
     Active Substance: CYTARABINE
     Dates: end: 20150315
  7. DEXAMETHASONE. [Suspect]
     Active Substance: DEXAMETHASONE
     Dates: end: 20161114
  8. CYCLOPHOSPHAMIDE. [Suspect]
     Active Substance: CYCLOPHOSPHAMIDE
     Dates: end: 20150305
  9. MERCAPTOPURINE. [Suspect]
     Active Substance: MERCAPTOPURINE
     Dates: end: 20170103

REACTIONS (12)
  - Pancytopenia [None]
  - Coronavirus test positive [None]
  - Fatigue [None]
  - Pain in extremity [None]
  - Hypogammaglobulinaemia [None]
  - Pallor [None]
  - Blood bilirubin unconjugated increased [None]
  - Respiratory syncytial virus test positive [None]
  - Heart rate increased [None]
  - Febrile neutropenia [None]
  - Respiratory rate increased [None]
  - Haemolytic anaemia [None]

NARRATIVE: CASE EVENT DATE: 20170104
